FAERS Safety Report 9204092 (Version 1)
Quarter: 2013Q1

REPORT INFORMATION
  Report Type: Spontaneous
  Country: US (occurrence: None)
  Receive Date: 20130329
  Receipt Date: 20130329
  Transmission Date: 20140127
  Serious: Yes (Life-Threatening, Hospitalization)
  Sender: FDA-Public Use
  Company Number: None

PATIENT
  Age: 60 Year
  Sex: Female
  Weight: 60.5 kg

DRUGS (2)
  1. DOCETAXEL [Suspect]
     Indication: NON-SMALL CELL LUNG CANCER METASTATIC
     Dosage: 92.4 MG Q 21 DAYS
     Route: 042
     Dates: start: 20130130, end: 20130220
  2. SURAMIN [Suspect]
     Indication: NON-SMALL CELL LUNG CANCER METASTATIC
     Dosage: 218 MG Q 21 DAYS
     Route: 042
     Dates: start: 20130130, end: 20130220

REACTIONS (1)
  - Acute myocardial infarction [None]
